FAERS Safety Report 19116019 (Version 1)
Quarter: 2021Q2

REPORT INFORMATION
  Report Type: Report from Study
  Country: US (occurrence: US)
  Receive Date: 20210409
  Receipt Date: 20210409
  Transmission Date: 20210717
  Serious: Yes (Hospitalization, Other)
  Sender: FDA-Public Use
  Company Number: US-BIOVITRUM-2020US5223

PATIENT
  Sex: Female

DRUGS (17)
  1. KINERET [Suspect]
     Active Substance: ANAKINRA
     Indication: RHEUMATOID ARTHRITIS
     Route: 058
     Dates: start: 20200923
  2. PEPCID [Concomitant]
     Active Substance: FAMOTIDINE
  3. SALT TABS [Concomitant]
     Active Substance: SODIUM CHLORIDE
  4. PREDNISONE. [Suspect]
     Active Substance: PREDNISONE
     Indication: PRODUCT USED FOR UNKNOWN INDICATION
  5. FLUDROCORTISONE [Concomitant]
     Active Substance: FLUDROCORTISONE
  6. ZOFRAN [Concomitant]
     Active Substance: ONDANSETRON HYDROCHLORIDE
  7. ALBUTEROL SULFATE. [Concomitant]
     Active Substance: ALBUTEROL SULFATE
  8. TPN [Concomitant]
     Active Substance: AMINO ACIDS\DEXTROSE\ELECTROLYTES NOS\SOYBEAN OIL
  9. CROMOLYN SODIUM. [Concomitant]
     Active Substance: CROMOLYN SODIUM
  10. ATIVAN [Concomitant]
     Active Substance: LORAZEPAM
  11. ZYRTEC [Concomitant]
     Active Substance: CETIRIZINE HYDROCHLORIDE
  12. HYDROCORTISONE. [Concomitant]
     Active Substance: HYDROCORTISONE
  13. EPIPEN [Concomitant]
     Active Substance: EPINEPHRINE
  14. MIRALAX [Concomitant]
     Active Substance: POLYETHYLENE GLYCOL 3350
  15. BENADRYL [Concomitant]
     Active Substance: DIPHENHYDRAMINE HYDROCHLORIDE
  16. NYSTATIN. [Concomitant]
     Active Substance: NYSTATIN
  17. PREDNISOLONE. [Concomitant]
     Active Substance: PREDNISOLONE

REACTIONS (16)
  - Anaphylactic reaction [Unknown]
  - Fatigue [Unknown]
  - Mast cell activation syndrome [Unknown]
  - Hypersensitivity [Unknown]
  - Drug hypersensitivity [Unknown]
  - Therapeutic product effect incomplete [Unknown]
  - Blood potassium decreased [Unknown]
  - Serum ferritin decreased [Unknown]
  - Injection site swelling [Unknown]
  - Vitamin B12 deficiency [Unknown]
  - Injection site bruising [Unknown]
  - Complication associated with device [Unknown]
  - Adrenocortical insufficiency acute [Unknown]
  - Feeding disorder [Unknown]
  - Anaemia [Unknown]
  - Vitamin D decreased [Unknown]
